FAERS Safety Report 8145217-8 (Version None)
Quarter: 2012Q1

REPORT INFORMATION
  Report Type: 
  Country: None (occurrence: None)
  Receive Date: 20120217
  Receipt Date: 20120207
  Transmission Date: 20120608
  Serious: Yes (Hospitalization)
  Sender: FDA-Public Use
  Company Number: HU-SANOFI-AVENTIS-2012SA008600

PATIENT
  Age: 86 Year
  Sex: Male
  Weight: 76 kg

DRUGS (4)
  1. PREDNISONE [Suspect]
  2. CABAZITAXEL [Suspect]
     Route: 042
     Dates: start: 20120202, end: 20120202
  3. ORAL ANTIDIABETICS [Concomitant]
     Indication: DIABETES MELLITUS
     Route: 048
  4. CABAZITAXEL [Suspect]
     Route: 042
     Dates: start: 20110929, end: 20110929

REACTIONS (2)
  - VOMITING [None]
  - DIABETES MELLITUS [None]
